FAERS Safety Report 15678643 (Version 1)
Quarter: 2018Q4

REPORT INFORMATION
  Report Type: Spontaneous
  Country: US (occurrence: US)
  Receive Date: 20181130
  Receipt Date: 20181130
  Transmission Date: 20190205
  Serious: Yes (Disabling)
  Sender: FDA-Public Use
  Company Number: None

PATIENT
  Age: 63 Year
  Sex: Male
  Weight: 63 kg

DRUGS (1)
  1. HYDROCODONE-ACETAMINOPHEN [Suspect]
     Active Substance: ACETAMINOPHEN\HYDROCODONE
     Indication: POST HERPETIC NEURALGIA
     Dates: start: 20181128, end: 20181130

REACTIONS (2)
  - Headache [None]
  - Drug ineffective [None]

NARRATIVE: CASE EVENT DATE: 20181128
